FAERS Safety Report 8085422-2 (Version None)
Quarter: 2012Q1

REPORT INFORMATION
  Report Type: 
  Country: None (occurrence: None)
  Receive Date: 20120128
  Receipt Date: 20110420
  Transmission Date: 20120608
  Serious: No
  Sender: FDA-Public Use
  Company Number: US-ABBOTT-11P-163-0700085-00

PATIENT
  Sex: Female
  Weight: 79.45 kg

DRUGS (2)
  1. HUMIRA [Suspect]
     Indication: CROHN'S DISEASE
     Dates: start: 20101001
  2. HUMIRA [Suspect]
     Dates: start: 20110227

REACTIONS (19)
  - INJECTION SITE REACTION [None]
  - NASAL DRYNESS [None]
  - INJECTION SITE PAIN [None]
  - URTICARIA [None]
  - SNEEZING [None]
  - INJECTION SITE WARMTH [None]
  - SINUSITIS [None]
  - FEELING HOT [None]
  - PYREXIA [None]
  - DRY EYE [None]
  - SWELLING [None]
  - INJECTION SITE PRURITUS [None]
  - FEELING ABNORMAL [None]
  - EAR PAIN [None]
  - SINUS CONGESTION [None]
  - SKIN EXFOLIATION [None]
  - PRURITUS [None]
  - ERYTHEMA [None]
  - INJECTION SITE URTICARIA [None]
